FAERS Safety Report 9892102 (Version 1)
Quarter: 2014Q1

REPORT INFORMATION
  Report Type: Spontaneous
  Country: US (occurrence: US)
  Receive Date: 20140212
  Receipt Date: 20140212
  Transmission Date: 20141002
  Serious: Yes (Other)
  Sender: FDA-Public Use
  Company Number: US-PFIZER INC-2014039115

PATIENT
  Sex: Male
  Weight: 62.59 kg

DRUGS (12)
  1. ALPRAZOLAM [Suspect]
     Indication: STRESS
     Dosage: 0.5 MG, 3X/DAY
     Route: 048
  2. ALPRAZOLAM [Suspect]
     Indication: NERVOUSNESS
  3. BACLOFEN [Concomitant]
     Dosage: UNK
  4. METOPROLOL [Concomitant]
     Dosage: UNK
  5. ASPIRIN [Concomitant]
     Dosage: UNK
  6. LIPITOR [Concomitant]
     Dosage: UNK
  7. RANEXA [Concomitant]
     Dosage: UNK
  8. NIACIN [Concomitant]
     Dosage: UNK
  9. FISH OIL [Concomitant]
     Dosage: UNK
  10. NEXIUM [Concomitant]
     Dosage: UNK
  11. LISINOPRIL [Concomitant]
     Dosage: UNK
  12. LIDODERM PATCH [Concomitant]
     Dosage: UNK

REACTIONS (4)
  - Diabetes mellitus [Unknown]
  - Optic nerve injury [Unknown]
  - Malaise [Unknown]
  - Pain [Unknown]
